FAERS Safety Report 18164959 (Version 1)
Quarter: 2020Q3

REPORT INFORMATION
  Report Type: Spontaneous
  Country: US (occurrence: US)
  Receive Date: 20200818
  Receipt Date: 20200818
  Transmission Date: 20201103
  Serious: Yes (Other)
  Sender: FDA-Public Use
  Company Number: US-ASTRAZENECA-2020SF03358

PATIENT
  Sex: Female
  Weight: 81.6 kg

DRUGS (4)
  1. FASLODEX [Suspect]
     Active Substance: FULVESTRANT
     Indication: BREAST CANCER FEMALE
     Dosage: UNKNOWN
     Route: 030
  2. IBRANCE [Suspect]
     Active Substance: PALBOCICLIB
     Indication: BREAST CANCER FEMALE
     Dosage: 75 MG DAILY 21 DAYS
     Route: 048
     Dates: start: 20190727
  3. ANASTROZOLE. [Concomitant]
     Active Substance: ANASTROZOLE
  4. CALTRATE 600+D3 PLUS MINERALS [Concomitant]

REACTIONS (4)
  - Metastases to liver [Unknown]
  - Weight increased [Unknown]
  - Fatigue [Unknown]
  - Malignant neoplasm progression [Unknown]
